FAERS Safety Report 7372463-3 (Version None)
Quarter: 2011Q1

REPORT INFORMATION
  Report Type: 
  Country: None (occurrence: None)
  Receive Date: 20110315
  Receipt Date: 20110309
  Transmission Date: 20110831
  Serious: Yes (Other)
  Sender: FDA-Public Use
  Company Number: 1000019187

PATIENT
  Age: 60 Year
  Sex: Female

DRUGS (4)
  1. METFORMIN (METFORMIN) (50 MILLIGRAM, TABLETS) [Suspect]
     Indication: TYPE 2 DIABETES MELLITUS
     Dosage: 150 MG (50 MG, 3 IN 1 D), ORAL
     Route: 048
     Dates: start: 20110101
  2. IBUPROFEN [Concomitant]
  3. MULTIVITAMINS (MULTIVITAMINS) (MULTIVITAMINS) [Concomitant]
  4. BYSTOLIC [Suspect]
     Indication: HYPERTENSION
     Dosage: 5 MG (5 MG, 1 IN 1 D),ORAL
     Route: 048
     Dates: start: 20101201, end: 20110101

REACTIONS (3)
  - TYPE 2 DIABETES MELLITUS [None]
  - DRUG INTERACTION [None]
  - PHARYNGEAL OEDEMA [None]
